FAERS Safety Report 4307318-1 (Version None)
Quarter: 2004Q1

REPORT INFORMATION
  Report Type: 
  Country: None (occurrence: None)
  Receive Date: 20040226
  Receipt Date: 20040213
  Transmission Date: 20041129
  Serious: Yes (Hospitalization)
  Sender: FDA-Public Use
  Company Number: 2004010847

PATIENT
  Age: 54 Year
  Sex: Male

DRUGS (3)
  1. ATARAX [Suspect]
     Indication: ILL-DEFINED DISORDER
     Dosage: 25 MG (ONCE), ORAL
     Route: 048
     Dates: start: 20020823, end: 20020823
  2. NALBUPHINE HCL [Suspect]
     Indication: PAIN
     Dosage: 10 MG (ONCE), INTRAVENOUS
     Route: 042
     Dates: start: 20020823, end: 20020823
  3. CLORAZEPATE DIPOTASSIUM [Suspect]
     Indication: ILL-DEFINED DISORDER
     Dosage: 40 MG (20MG TWICE), ORAL
     Route: 048
     Dates: start: 20020823, end: 20020823

REACTIONS (5)
  - BRADYPNOEA [None]
  - PAIN IN EXTREMITY [None]
  - RESPIRATORY DEPRESSION [None]
  - RESTLESSNESS [None]
  - SOMNOLENCE [None]
